FAERS Safety Report 7940444-4 (Version None)
Quarter: 2011Q4

REPORT INFORMATION
  Report Type: 
  Country: None (occurrence: None)
  Receive Date: 20111128
  Receipt Date: 20111118
  Transmission Date: 20120403
  Serious: Yes (Hospitalization, Other)
  Sender: FDA-Public Use
  Company Number: BE-AMGEN-BELSP2011037572

PATIENT
  Age: 76 Year
  Sex: Female
  Weight: 79 kg

DRUGS (11)
  1. CATAPRESAN                         /00171101/ [Concomitant]
     Dosage: UNK UNK, BID
  2. GLUCOPHAGE [Concomitant]
     Dosage: UNK UNK, TID
     Dates: start: 20060701
  3. SIMVASTATIN [Concomitant]
     Dosage: UNK
     Dates: start: 20090301
  4. BONDRONAT                          /01304701/ [Concomitant]
     Dosage: UNK UNK, QMO
  5. ENBREL [Suspect]
     Indication: PSORIASIS
     Dosage: 50 MG, WEEKLY
     Route: 058
     Dates: start: 20101117, end: 20110701
  6. FEMARA [Concomitant]
     Dosage: UNK UNK, QD
     Dates: start: 20090901
  7. TRAMADOL HYDROCHLORIDE [Concomitant]
  8. CALCIPOTRIENE [Concomitant]
     Indication: PSORIASIS
  9. ACETAMINOPHEN [Concomitant]
  10. LEVOTHYROXINE SODIUM [Concomitant]
     Dosage: UNK UNK, QD
     Dates: start: 20090101
  11. VITALUX                            /01586901/ [Concomitant]
     Dosage: UNK
     Dates: start: 20060801

REACTIONS (1)
  - BREAST CANCER RECURRENT [None]
